FAERS Safety Report 9920481 (Version 1)
Quarter: 2014Q1

REPORT INFORMATION
  Report Type: Spontaneous
  Country: US (occurrence: US)
  Receive Date: 20140224
  Receipt Date: 20140224
  Transmission Date: 20141002
  Serious: No
  Sender: FDA-Public Use
  Company Number: US-NOVEN-13US008196

PATIENT
  Sex: Female
  Weight: 104.31 kg

DRUGS (7)
  1. MINIVELLE [Suspect]
     Indication: HORMONE REPLACEMENT THERAPY
     Dosage: 0.1 MG/DAY, UNK
     Route: 062
     Dates: start: 2013
  2. SYNTHROID [Concomitant]
     Indication: THYROIDECTOMY
     Dosage: 150 UG, QD
     Route: 048
     Dates: start: 2008
  3. CYTOMEL [Concomitant]
     Indication: THYROID DISORDER
     Dosage: 25 UG, QD
     Route: 048
     Dates: start: 2008
  4. ROCALTROL [Concomitant]
     Indication: MINERAL SUPPLEMENTATION
     Dosage: 0.25 UG, BID
     Route: 048
  5. DEXILANT [Concomitant]
     Indication: GASTROOESOPHAGEAL REFLUX DISEASE
     Dosage: 60 MG, QD
     Route: 048
  6. LEXAPRO [Concomitant]
     Indication: ANXIETY
     Dosage: 20 MG, UNK
     Route: 048
  7. HYDROCHLOROTHIAZIDE [Concomitant]
     Indication: HYPERTENSION
     Dosage: UNK
     Route: 048

REACTIONS (3)
  - Rash [Not Recovered/Not Resolved]
  - Product quality issue [Not Recovered/Not Resolved]
  - Off label use [None]
